FAERS Safety Report 8284394-5 (Version None)
Quarter: 2012Q2

REPORT INFORMATION
  Report Type: 
  Country: None (occurrence: None)
  Receive Date: 20120413
  Receipt Date: 20110701
  Transmission Date: 20120825
  Serious: No
  Sender: FDA-Public Use
  Company Number: US-ASTRAZENECA-2011SE39677

PATIENT
  Age: 33 Year
  Sex: Male
  Weight: 77.1 kg

DRUGS (2)
  1. AMLODIPINE [Concomitant]
     Indication: HYPERTENSION
  2. NEXIUM [Suspect]
     Route: 048

REACTIONS (2)
  - MUSCULAR WEAKNESS [None]
  - FEELING HOT [None]
